FAERS Safety Report 19002662 (Version 2)
Quarter: 2021Q1

REPORT INFORMATION
  Report Type: Spontaneous
  Country: US (occurrence: US)
  Receive Date: 20210312
  Receipt Date: 20210312
  Transmission Date: 20210420
  Serious: No
  Sender: FDA-Public Use
  Company Number: US-ALLERGAN-2048571US

PATIENT
  Sex: Female

DRUGS (2)
  1. ESTRACE [Suspect]
     Active Substance: ESTRADIOL
     Indication: VAGINAL INFECTION
     Dosage: UNK
     Route: 067
     Dates: start: 20201211
  2. ESTRACE [Suspect]
     Active Substance: ESTRADIOL
     Indication: VAGINAL INFECTION

REACTIONS (4)
  - Off label use [Unknown]
  - Device defective [Unknown]
  - Wrong technique in product usage process [Unknown]
  - Device issue [Unknown]
